FAERS Safety Report 8803456 (Version 1)
Quarter: 2012Q4

REPORT INFORMATION
  Report Type: 
  Country: GB (occurrence: GB)
  Receive Date: 20120924
  Receipt Date: 20120924
  Transmission Date: 20130627
  Serious: Yes (Other)
  Sender: FDA-Public Use
  Company Number: PHFR2012GB004463

PATIENT
  Age: 40 Year
  Sex: Female

DRUGS (8)
  1. CLOZARIL [Suspect]
     Indication: SCHIZOPHRENIA
     Route: 048
     Dates: start: 20030703
  2. CLOZARIL [Suspect]
     Dosage: 375 mg daily
     Route: 048
  3. AMISULPRIDE [Concomitant]
     Dosage: 300 mg daily
     Route: 048
  4. DIAZEPAM [Concomitant]
     Dosage: 7.5 mg daily
     Route: 048
  5. HYOSCINE HYDROBROMIDE [Concomitant]
     Dosage: 900 ug daily
     Route: 048
  6. THYROXINE [Concomitant]
     Dosage: 100 ug daily
     Route: 048
  7. NOVOMIX [Concomitant]
  8. ZOPICLONE [Concomitant]
     Dosage: 7.5 mg daily
     Route: 048

REACTIONS (2)
  - Differential white blood cell count abnormal [Recovered/Resolved]
  - Platelet count decreased [Recovered/Resolved]
